FAERS Safety Report 22043108 (Version 1)
Quarter: 2023Q1

REPORT INFORMATION
  Report Type: Other
  Country: None (occurrence: US)
  Receive Date: 20230228
  Receipt Date: 20230228
  Transmission Date: 20230418
  Serious: Yes (Life-Threatening, Hospitalization, Other)
  Sender: FDA-Public Use
  Company Number: US-AptaPharma Inc.-2138520

PATIENT
  Age: 15 Year
  Sex: Male

DRUGS (2)
  1. IBUPROFEN [Suspect]
     Active Substance: IBUPROFEN
     Indication: Product used for unknown indication
     Route: 048
  2. DIPHENHYDRAMINE [Concomitant]
     Active Substance: DIPHENHYDRAMINE
     Route: 048

REACTIONS (16)
  - Multiple organ dysfunction syndrome [Recovered/Resolved]
  - Coma [Recovered/Resolved]
  - Lactic acidosis [Recovered/Resolved]
  - Acute kidney injury [Recovered/Resolved]
  - Polyuria [Recovered/Resolved]
  - Hypoglycaemia [Recovered/Resolved]
  - Metabolic acidosis [Recovered/Resolved]
  - Nodal rhythm [Recovered/Resolved]
  - Toxicity to various agents [Recovered/Resolved]
  - Cardiac arrest [Recovered/Resolved]
  - Shock [Recovered/Resolved]
  - Unresponsive to stimuli [Recovered/Resolved]
  - Deep vein thrombosis [Recovered/Resolved]
  - Cerebral haemorrhage [Recovered/Resolved]
  - Pneumonia necrotising [Recovered/Resolved]
  - Intentional overdose [Unknown]
